FAERS Safety Report 21366268 (Version 1)
Quarter: 2022Q3

REPORT INFORMATION
  Report Type: Spontaneous
  Country: US (occurrence: US)
  Receive Date: 20220922
  Receipt Date: 20220922
  Transmission Date: 20221027
  Serious: No
  Sender: FDA-Public Use
  Company Number: US-PURDUE PHARMA-USA-2022-0291889

PATIENT
  Age: 59 Year
  Sex: Female

DRUGS (8)
  1. BUPRENORPHINE [Suspect]
     Active Substance: BUPRENORPHINE
     Indication: Neck pain
     Dosage: 1 PATCH, WEEKLY
     Route: 062
     Dates: start: 20220208
  2. BUPRENORPHINE [Suspect]
     Active Substance: BUPRENORPHINE
     Indication: Back pain
  3. BUPRENORPHINE [Suspect]
     Active Substance: BUPRENORPHINE
     Indication: Neuralgia
  4. DESVENLAFAXINE [Concomitant]
     Active Substance: DESVENLAFAXINE
     Indication: Depression
     Dosage: 50 MG, HS
     Route: 048
     Dates: start: 202112
  5. DESVENLAFAXINE [Concomitant]
     Active Substance: DESVENLAFAXINE
     Indication: Pain
  6. LINACLOTIDE [Concomitant]
     Active Substance: LINACLOTIDE
     Indication: Inflammatory bowel disease
     Dosage: 145 MG, DAILY (EVERY MORNING)
     Route: 048
     Dates: start: 20220217
  7. ESTRADIOL [Concomitant]
     Active Substance: ESTRADIOL
     Indication: Vulval cancer
     Dosage: 0.1 MG, WEEKLY
     Route: 067
     Dates: start: 2021
  8. NYSTATIN [Concomitant]
     Active Substance: NYSTATIN
     Indication: Oesophageal candidiasis

REACTIONS (1)
  - Therapeutic product effect decreased [Not Recovered/Not Resolved]

NARRATIVE: CASE EVENT DATE: 20220219
